FAERS Safety Report 17662278 (Version 2)
Quarter: 2020Q2

REPORT INFORMATION
  Report Type: Spontaneous
  Country: US (occurrence: US)
  Receive Date: 20200413
  Receipt Date: 20200417
  Transmission Date: 20200713
  Serious: Yes (Death)
  Sender: FDA-Public Use
  Company Number: US-MALLINCKRODT-T202001632

PATIENT

DRUGS (2)
  1. INOMAX [Suspect]
     Active Substance: NITRIC OXIDE
     Indication: CORONAVIRUS INFECTION
     Dosage: 80PPM, INHALATION
     Route: 055
     Dates: start: 20200401, end: 20200406
  2. INOMAX [Suspect]
     Active Substance: NITRIC OXIDE
     Indication: HYPOXIA

REACTIONS (2)
  - Product use in unapproved indication [Unknown]
  - Coronavirus infection [Fatal]

NARRATIVE: CASE EVENT DATE: 202004
